FAERS Safety Report 24758586 (Version 1)
Quarter: 2024Q4

REPORT INFORMATION
  Report Type: Spontaneous
  Country: ES (occurrence: ES)
  Receive Date: 20241220
  Receipt Date: 20241220
  Transmission Date: 20250115
  Serious: Yes (Hospitalization)
  Sender: ORGANON
  Company Number: None

PATIENT
  Age: 57 Year
  Sex: Female

DRUGS (2)
  1. BETAMETHASONE [Suspect]
     Active Substance: BETAMETHASONE
     Indication: Arthralgia
     Dosage: 1 ML SINGLE DOSE (SUSPENSION FOR INJECTION)
     Route: 014
     Dates: start: 20241014, end: 20241014
  2. MEPIVACAINE HYDROCHLORIDE [Suspect]
     Active Substance: MEPIVACAINE HYDROCHLORIDE
     Indication: Arthralgia
     Dosage: 9 ML SINGLE DOSE, THE CONCENTRATION (THE PERCENTAGE OF THE VIAL) OF MEPIVACAINE IS NOT KNOWN, IT IS
     Route: 014
     Dates: start: 20241014, end: 20241014

REACTIONS (3)
  - Dizziness [Recovered/Resolved]
  - Loss of consciousness [Recovered/Resolved]
  - Seizure [Recovered/Resolved]

NARRATIVE: CASE EVENT DATE: 20241014
